FAERS Safety Report 18507049 (Version 1)
Quarter: 2020Q4

REPORT INFORMATION
  Report Type: Spontaneous
  Country: US (occurrence: US)
  Receive Date: 20201115
  Receipt Date: 20201115
  Transmission Date: 20210114
  Serious: Yes (Life-Threatening)
  Sender: FDA-Public Use
  Company Number: None

PATIENT
  Age: 75 Year
  Sex: Female
  Weight: 76.5 kg

DRUGS (9)
  1. DAILY VITAMINS [Concomitant]
     Active Substance: VITAMINS
  2. C [Concomitant]
  3. HYDROXYZINE [Concomitant]
     Active Substance: HYDROXYZINE HYDROCHLORIDE
  4. D [Concomitant]
  5. OOTASIUM [Concomitant]
  6. CALCIUM [Concomitant]
     Active Substance: CALCIUM
  7. GABAPENTIN. [Suspect]
     Active Substance: GABAPENTIN
     Indication: NEURALGIA
     Dosage: ?          QUANTITY:300 CAPSULE(S);?
     Route: 048
     Dates: start: 20201002, end: 20201031
  8. NAPROXEN. [Concomitant]
     Active Substance: NAPROXEN
  9. A [Concomitant]

REACTIONS (18)
  - Somnolence [None]
  - Dizziness [None]
  - Dissociation [None]
  - Feeling of despair [None]
  - Abdominal pain [None]
  - Confusional state [None]
  - Taste disorder [None]
  - Fear [None]
  - Insomnia [None]
  - Decreased appetite [None]
  - Hot flush [None]
  - Amnesia [None]
  - Hallucination [None]
  - Parosmia [None]
  - Depression [None]
  - Anxiety [None]
  - Chills [None]
  - Thinking abnormal [None]

NARRATIVE: CASE EVENT DATE: 20201019
